FAERS Safety Report 10872135 (Version 2)
Quarter: 2015Q1

REPORT INFORMATION
  Report Type: Spontaneous
  Country: BR (occurrence: BR)
  Receive Date: 20150226
  Receipt Date: 20150312
  Transmission Date: 20150721
  Serious: Yes (Other)
  Sender: FDA-Public Use
  Company Number: CHPA2015BR002742

PATIENT
  Sex: Female
  Weight: 72 kg

DRUGS (2)
  1. BUFFERIN [Suspect]
     Active Substance: ASPIRIN
     Indication: ANTIPLATELET THERAPY
     Dosage: 1 DF, QD
     Route: 048
     Dates: start: 1993
  2. AAS [Concomitant]
     Active Substance: ASPIRIN
     Indication: PRODUCT USED FOR UNKNOWN INDICATION
     Dosage: 1 DF, UNK, AT NIGHT
     Route: 048
     Dates: start: 20150217

REACTIONS (5)
  - Diabetes mellitus [Recovering/Resolving]
  - Blood cholesterol increased [Recovering/Resolving]
  - Off label use [Unknown]
  - Hypothyroidism [Recovering/Resolving]
  - Blood glucose increased [Recovered/Resolved]
